FAERS Safety Report 16740547 (Version 1)
Quarter: 2019Q4

REPORT INFORMATION
  Report Type: Spontaneous
  Country: US (occurrence: US)
  Receive Date: 20190824
  Receipt Date: 20190824
  Transmission Date: 20200122
  Serious: Yes (Disabling, Other)
  Sender: FDA-Public Use
  Company Number: None

PATIENT
  Age: 46 Year
  Sex: Female
  Weight: 63 kg

DRUGS (2)
  1. MELATONIN [Concomitant]
     Active Substance: MELATONIN
  2. PREDNISONE. [Suspect]
     Active Substance: PREDNISONE
     Indication: BASEDOW^S DISEASE
     Dosage: ?          QUANTITY:1 TABLET(S);?
     Route: 048

REACTIONS (3)
  - Tooth disorder [None]
  - Osteonecrosis [None]
  - Bone disorder [None]

NARRATIVE: CASE EVENT DATE: 20180315
